FAERS Safety Report 7160582-6 (Version None)
Quarter: 2010Q4

REPORT INFORMATION
  Report Type: 
  Country: None (occurrence: None)
  Receive Date: 20101214
  Receipt Date: 20091125
  Transmission Date: 20110411
  Serious: No
  Sender: FDA-Public Use
  Company Number: US-AMGEN-KDL377140

PATIENT

DRUGS (1)
  1. ENBREL [Suspect]
     Indication: RHEUMATOID ARTHRITIS
     Dosage: 25 MG, QWK
     Route: 058

REACTIONS (6)
  - COUGH [None]
  - INFECTION [None]
  - INFLUENZA LIKE ILLNESS [None]
  - MUSCLE STRAIN [None]
  - PYREXIA [None]
  - RETCHING [None]
